FAERS Safety Report 6702695-6 (Version None)
Quarter: 2010Q2

REPORT INFORMATION
  Report Type: 
  Country: None (occurrence: None)
  Receive Date: 20100429
  Receipt Date: 20100422
  Transmission Date: 20101027
  Serious: Yes (Hospitalization)
  Sender: FDA-Public Use
  Company Number: GB-AMGEN-KDC401300

PATIENT
  Sex: Male

DRUGS (5)
  1. ROMIPLOSTIM [Suspect]
     Indication: IDIOPATHIC THROMBOCYTOPENIC PURPURA
     Route: 058
     Dates: start: 20090720
  2. FELODIPINE [Concomitant]
     Dates: start: 20081201
  3. AMILORIDE/CYCLOPENTHIAZIDE [Concomitant]
     Dates: start: 20090803
  4. UNSPECIFIED STEROIDS [Concomitant]
     Route: 048
  5. PREDNISOLONE [Concomitant]

REACTIONS (10)
  - CONDITION AGGRAVATED [None]
  - EPISTAXIS [None]
  - HAEMATOCRIT DECREASED [None]
  - HAEMOGLOBIN DECREASED [None]
  - HAEMORRHAGE [None]
  - HYPERTENSION [None]
  - MUCOSAL HAEMORRHAGE [None]
  - PLATELET COUNT DECREASED [None]
  - PURPURA [None]
  - RED BLOOD CELL COUNT DECREASED [None]
